FAERS Safety Report 5860953-1 (Version None)
Quarter: 2008Q3

REPORT INFORMATION
  Report Type: 
  Country: None (occurrence: None)
  Receive Date: 20080827
  Receipt Date: 20080814
  Transmission Date: 20090109
  Serious: Yes (Hospitalization)
  Sender: FDA-Public Use
  Company Number: US-AMGEN-QUU301569

PATIENT
  Sex: Female

DRUGS (3)
  1. NEULASTA [Suspect]
     Indication: CHEMOTHERAPY
     Route: 065
  2. PACLITAXEL [Concomitant]
  3. CISPLATIN [Concomitant]

REACTIONS (2)
  - HAEMATOCRIT DECREASED [None]
  - SPLENIC RUPTURE [None]
